FAERS Safety Report 20371401 (Version 1)
Quarter: 2022Q1

REPORT INFORMATION
  Report Type: Spontaneous
  Country: NL (occurrence: NL)
  Receive Date: 20220124
  Receipt Date: 20220124
  Transmission Date: 20220424
  Serious: Yes (Other)
  Sender: FDA-Public Use
  Company Number: NL-CELLTRION HEALTHCARE HUNGARY KFT-2022NL000306

PATIENT

DRUGS (10)
  1. DOCETAXEL [Suspect]
     Active Substance: DOCETAXEL
     Indication: HER2 positive salivary gland cancer
     Dosage: 75 MG/M2, EVERY 3 WEEKS
  2. DOCETAXEL [Suspect]
     Active Substance: DOCETAXEL
     Dosage: 75 MILLIGRAM/SQ. METER, EVERY 3 WEEKS
  3. DOCETAXEL [Suspect]
     Active Substance: DOCETAXEL
     Dosage: 75 MILLIGRAM/SQ. METER, EVERY 3 WEEKS
  4. DOCETAXEL [Suspect]
     Active Substance: DOCETAXEL
     Dosage: 75 MILLIGRAM/SQ. METER, EVERY 3 WEEKS
  5. DOCETAXEL [Suspect]
     Active Substance: DOCETAXEL
     Dosage: 75 MILLIGRAM/SQ. METER, EVERY 3 WEEKS
  6. DOCETAXEL [Suspect]
     Active Substance: DOCETAXEL
     Dosage: 75 MILLIGRAM/SQ. METER, EVERY 3 WEEKS
  7. TRASTUZUMAB [Suspect]
     Active Substance: TRASTUZUMAB
     Indication: HER2 positive salivary gland cancer
     Dosage: EVERY 3 WEEKS
  8. PERTUZUMAB [Suspect]
     Active Substance: PERTUZUMAB
     Indication: HER2 positive salivary gland cancer
     Dosage: STARTING DOSE: 840 MG
     Route: 042
  9. PERTUZUMAB [Suspect]
     Active Substance: PERTUZUMAB
     Dosage: 420 MILLIGRAM(SUBSEQUENT DOSAGES)
     Route: 042
  10. ADO-TRASTUZUMAB EMTANSINE [Suspect]
     Active Substance: ADO-TRASTUZUMAB EMTANSINE
     Indication: HER2 positive salivary gland cancer
     Dosage: 3.6 MG/KG, EVERY 3 WEEKS (SECOND-LINE HER2 TARGETED TREATMENT)
     Route: 042

REACTIONS (3)
  - Salivary gland cancer [Unknown]
  - Disease progression [Unknown]
  - Off label use [Unknown]
